FAERS Safety Report 23549436 (Version 1)
Quarter: 2024Q1

REPORT INFORMATION
  Report Type: Spontaneous
  Country: US (occurrence: None)
  Receive Date: 20240220
  Receipt Date: 20240220
  Transmission Date: 20240410
  Serious: Yes (Other)
  Sender: FDA-Public Use
  Company Number: None

PATIENT
  Sex: Female

DRUGS (11)
  1. RINVOQ [Suspect]
     Active Substance: UPADACITINIB
     Indication: Colitis
     Dosage: FREQUENCY : DAILY;?FREQ: TAKE 1 TABLET (30 MG) BY MQUTH DAILY.?
     Route: 048
  2. ADVIL [Concomitant]
     Active Substance: IBUPROFEN
  3. CYMBALTA [Concomitant]
     Active Substance: DULOXETINE HYDROCHLORIDE
  4. DULOXETINE [Concomitant]
     Active Substance: DULOXETINE
  5. LEXAPRO [Concomitant]
     Active Substance: ESCITALOPRAM OXALATE
  6. LYRICA [Concomitant]
     Active Substance: PREGABALIN
  7. MELATONIN [Concomitant]
     Active Substance: MELATONIN
  8. MESALAMINE [Concomitant]
     Active Substance: MESALAMINE
  9. ONDANSETRON [Concomitant]
     Active Substance: ONDANSETRON
  10. PRAMIPEXOLE [Concomitant]
     Active Substance: PRAMIPEXOLE\PRAMIPEXOLE DIHYDROCHLORIDE
  11. RINVOQ [Concomitant]
     Active Substance: UPADACITINIB

REACTIONS (4)
  - Therapy change [None]
  - Product use issue [None]
  - Colitis ulcerative [None]
  - Spinal operation [None]
